FAERS Safety Report 5317100-4 (Version None)
Quarter: 2007Q2

REPORT INFORMATION
  Report Type: 
  Country: None (occurrence: None)
  Receive Date: 20070504
  Receipt Date: 20070424
  Transmission Date: 20071010
  Serious: Yes (Other)
  Sender: FDA-Public Use
  Company Number: JP-ROCHE-492611

PATIENT
  Age: 36 Year
  Sex: Female
  Weight: 58 kg

DRUGS (7)
  1. ROCEPHIN [Suspect]
     Indication: URINARY TRACT INFECTION
     Route: 041
     Dates: start: 20070330, end: 20070404
  2. LEVOFLOXACIN [Suspect]
     Indication: BACTERIAL INFECTION
     Route: 048
     Dates: start: 20070328, end: 20070330
  3. DASEN [Concomitant]
     Route: 048
     Dates: start: 20070328, end: 20070330
  4. SELBEX [Concomitant]
     Route: 048
     Dates: start: 20070328, end: 20070330
  5. HALCION [Concomitant]
     Indication: INSOMNIA
     Route: 048
     Dates: start: 20051208
  6. MYSLEE [Concomitant]
     Indication: INSOMNIA
     Route: 048
     Dates: start: 20060601
  7. DOGMATYL [Concomitant]
     Indication: INSOMNIA
     Route: 048
     Dates: start: 20051124

REACTIONS (2)
  - DIALYSIS [None]
  - RENAL FAILURE ACUTE [None]
